FAERS Safety Report 11971923 (Version 5)
Quarter: 2018Q3

REPORT INFORMATION
  Report Type: Report from Study
  Country: DE (occurrence: DE)
  Receive Date: 20160128
  Receipt Date: 20180919
  Transmission Date: 20181010
  Serious: Yes (Hospitalization)
  Sender: FDA-Public Use
  Company Number: PHHY2016DE008725

PATIENT
  Age: 53 Year
  Sex: Male
  Weight: 113 kg

DRUGS (3)
  1. ILARIS [Suspect]
     Active Substance: CANAKINUMAB
     Indication: GOUTY ARTHRITIS
     Dosage: 150 MG, QD
     Route: 058
     Dates: start: 20151215
  2. CORTISONE [Concomitant]
     Active Substance: CORTISONE\HYDROCORTISONE
     Indication: PRODUCT USED FOR UNKNOWN INDICATION
     Dosage: UNK
     Route: 065
  3. PARACETAMOL [Concomitant]
     Active Substance: ACETAMINOPHEN
     Indication: GOUTY ARTHRITIS
     Dosage: UNK UNK, QD (1?0?0)
     Route: 048
     Dates: start: 20150925

REACTIONS (2)
  - Pneumonia bacterial [Recovered/Resolved]
  - Incorrect dose administered [Unknown]

NARRATIVE: CASE EVENT DATE: 20160105
